FAERS Safety Report 5241259-0 (Version None)
Quarter: 2007Q1

REPORT INFORMATION
  Report Type: 
  Country: None (occurrence: None)
  Receive Date: 20070212
  Receipt Date: 20070212
  Transmission Date: 20070707
  Serious: Yes (Congenital Anomaly)
  Sender: FDA-Public Use
  Company Number: None

PATIENT
  Age: 34 Year
  Sex: Female
  Weight: 101.1521 kg

DRUGS (1)
  1. IBUPROFEN [Suspect]
     Indication: BACK INJURY
     Dosage: 800 MG THREE TIMES DAILY PO
     Route: 048
     Dates: start: 20070119, end: 20070210

REACTIONS (2)
  - ABNORMAL BEHAVIOUR [None]
  - AGGRESSION [None]
